FAERS Safety Report 23658029 (Version 3)
Quarter: 2024Q2

REPORT INFORMATION
  Report Type: Spontaneous
  Country: US (occurrence: US)
  Receive Date: 20240321
  Receipt Date: 20240417
  Transmission Date: 20240716
  Serious: Yes (Hospitalization, Disabling, Other)
  Sender: FDA-Public Use
  Company Number: US-GILEAD-2024-0666483

PATIENT
  Age: 69 Year
  Sex: Male

DRUGS (18)
  1. LENACAPAVIR [Suspect]
     Active Substance: LENACAPAVIR
     Indication: Product used for unknown indication
     Dosage: UNK
     Route: 065
     Dates: end: 202309
  2. LENACAPAVIR [Suspect]
     Active Substance: LENACAPAVIR
     Dosage: THIRD DOSE
     Route: 065
     Dates: start: 20240318
  3. ALBUTEROL SULFATE [Concomitant]
     Active Substance: ALBUTEROL SULFATE
  4. ATORVASTATIN [Concomitant]
     Active Substance: ATORVASTATIN
  5. CARVEDILOL [Concomitant]
     Active Substance: CARVEDILOL
  6. CLONIDINE [Concomitant]
     Active Substance: CLONIDINE
  7. EPINEPHRINE [Concomitant]
     Active Substance: EPINEPHRINE
  8. FAMOTIDINE [Concomitant]
     Active Substance: FAMOTIDINE
  9. FUROSEMIDE [Concomitant]
     Active Substance: FUROSEMIDE
  10. ISOSORBIDE MONONITRATE [Concomitant]
     Active Substance: ISOSORBIDE MONONITRATE
  11. LORATADINE [Concomitant]
     Active Substance: LORATADINE
  12. LOSARTAN [Concomitant]
     Active Substance: LOSARTAN
  13. POTASSIUM CHLORIDE [Concomitant]
     Active Substance: POTASSIUM CHLORIDE
  14. REPHRESH [Concomitant]
  15. RUKOBIA [Concomitant]
     Active Substance: FOSTEMSAVIR TROMETHAMINE
  16. SYMBICORT [Concomitant]
     Active Substance: BUDESONIDE\FORMOTEROL FUMARATE DIHYDRATE
  17. TRAZODONE [Concomitant]
     Active Substance: TRAZODONE HYDROCHLORIDE
  18. TROGARZO [Concomitant]
     Active Substance: IBALIZUMAB-UIYK

REACTIONS (11)
  - Retinal detachment [Unknown]
  - Blood pressure decreased [Recovered/Resolved]
  - Apathy [Not Recovered/Not Resolved]
  - Fatigue [Not Recovered/Not Resolved]
  - Injection site pain [Recovered/Resolved]
  - Head discomfort [Recovered/Resolved]
  - Chills [Recovered/Resolved]
  - Vitreous floaters [Not Recovered/Not Resolved]
  - Eye haemorrhage [Not Recovered/Not Resolved]
  - Depression [Unknown]
  - Injection site nodule [Not Recovered/Not Resolved]

NARRATIVE: CASE EVENT DATE: 20240318
